FAERS Safety Report 10182675 (Version 2)
Quarter: 2014Q2

REPORT INFORMATION
  Report Type: Spontaneous
  Country: US (occurrence: None)
  Receive Date: 20140516
  Receipt Date: 20140610
  Transmission Date: 20141212
  Serious: Yes (Hospitalization)
  Sender: FDA-Public Use
  Company Number: 20140265

PATIENT
  Age: 70 Year
  Sex: Female
  Weight: 68 kg

DRUGS (6)
  1. VENOFER (IRON SUCROSE INJECTION, USP) (2340-10) 20 MG/ML [Suspect]
     Indication: IRON DEFICIENCY ANAEMIA
     Route: 042
     Dates: start: 20131106, end: 20140402
  2. RITUXIMAB [Concomitant]
  3. BUSPIRONE [Concomitant]
  4. TRAZODONE [Concomitant]
  5. LAMOTRIGINE [Concomitant]
  6. CITALOPRAM [Concomitant]

REACTIONS (8)
  - Myocardial infarction [None]
  - Off label use [None]
  - Loss of consciousness [None]
  - Anaphylactic reaction [None]
  - Arrhythmia [None]
  - Cerebrovascular accident [None]
  - Transient ischaemic attack [None]
  - Urinary tract infection pseudomonal [None]
